FAERS Safety Report 23155641 (Version 3)
Quarter: 2024Q1

REPORT INFORMATION
  Report Type: Spontaneous
  Country: US (occurrence: US)
  Receive Date: 20231107
  Receipt Date: 20240226
  Transmission Date: 20240410
  Serious: No
  Sender: FDA-Public Use
  Company Number: US-SA-SAC20231030002653

PATIENT
  Age: 54 Year
  Sex: Female

DRUGS (1)
  1. KEVZARA [Suspect]
     Active Substance: SARILUMAB
     Indication: Polymyalgia rheumatica
     Dosage: 200 MG, QOW
     Route: 058
     Dates: start: 202307

REACTIONS (6)
  - Injection site rash [Unknown]
  - Skin exfoliation [Unknown]
  - Injection site dryness [Unknown]
  - Influenza like illness [Unknown]
  - Pruritus [Unknown]
  - Drug ineffective [Unknown]
